FAERS Safety Report 8448005-8 (Version None)
Quarter: 2012Q2

REPORT INFORMATION
  Report Type: 
  Country: None (occurrence: None)
  Receive Date: 20120619
  Receipt Date: 20120613
  Transmission Date: 20120825
  Serious: Yes (Other)
  Sender: FDA-Public Use
  Company Number: US-PFIZER INC-2012108425

PATIENT
  Sex: Female
  Weight: 67.029 kg

DRUGS (12)
  1. EFFEXOR XR [Suspect]
     Indication: DEPRESSION
     Dosage: 150 MG, 1X/DAY
     Route: 048
  2. VITAMIN D [Concomitant]
     Dosage: 600 MG, 1X/DAY
  3. NICOTINE [Concomitant]
     Dosage: UNK
  4. VENTOLIN [Concomitant]
     Indication: BRONCHITIS
     Dosage: UNK
  5. FLOVENT [Concomitant]
     Indication: ASTHMA
     Dosage: UNK, 1X/DAY
  6. NORVASC [Suspect]
     Indication: HYPERTENSION
     Dosage: 10 MG, 1X/DAY
     Route: 048
  7. CALCIUM [Concomitant]
     Dosage: UNK
  8. LIPITOR [Suspect]
     Indication: BLOOD CHOLESTEROL INCREASED
     Dosage: 20 MG, 1X/DAY
     Route: 048
  9. DRISDOL [Concomitant]
     Dosage: 50000 IU, UNK
  10. SYNTHROID [Concomitant]
     Indication: THYROID DISORDER
     Dosage: UNK
  11. PATADAY [Concomitant]
     Indication: EYE PRURITUS
     Dosage: UNK
  12. ACETYLSALICYLIC ACID [Concomitant]
     Indication: CARDIAC DISORDER
     Dosage: 81 MG, 1X/DAY

REACTIONS (1)
  - CARDIAC DISORDER [None]
